FAERS Safety Report 6997507-X (Version None)
Quarter: 2010Q3

REPORT INFORMATION
  Report Type: 
  Country: None (occurrence: None)
  Receive Date: 20100918
  Receipt Date: 20091021
  Transmission Date: 20110219
  Serious: Yes (Other)
  Sender: FDA-Public Use
  Company Number: US-WYE-H11737109

PATIENT
  Sex: Female
  Weight: 111.23 kg

DRUGS (8)
  1. PRISTIQ [Suspect]
     Indication: DEPRESSION
     Route: 048
     Dates: start: 20080101
  2. PREVACID [Concomitant]
     Dosage: UNKNOWN
  3. VITAMIN D [Concomitant]
     Dosage: UNKNOWN
  4. PROPRANOLOL [Concomitant]
     Dosage: UNKNOWN
  5. LYRICA [Concomitant]
     Dosage: UNKNOWN
  6. FOLIC ACID [Concomitant]
     Dosage: UNKNOWN
  7. REMERON [Concomitant]
     Dosage: UNKNOWN
  8. ALPRAZOLAM [Concomitant]
     Dosage: UNKNOWN

REACTIONS (1)
  - HEPATIC ENZYME INCREASED [None]
